FAERS Safety Report 20127642 (Version 1)
Quarter: 2021Q4

REPORT INFORMATION
  Report Type: Spontaneous
  Country: CN (occurrence: CN)
  Receive Date: 20211129
  Receipt Date: 20211129
  Transmission Date: 20220303
  Serious: Yes (Other)
  Sender: FDA-Public Use
  Company Number: CN-SLATE RUN PHARMACEUTICALS-21CN000814

PATIENT

DRUGS (7)
  1. VORICONAZOLE [Suspect]
     Active Substance: VORICONAZOLE
     Indication: Prophylaxis
     Dosage: UNK
     Route: 048
     Dates: start: 20190517, end: 20190521
  2. VORICONAZOLE [Suspect]
     Active Substance: VORICONAZOLE
     Indication: Fungal infection
     Dosage: UNK
     Route: 048
     Dates: start: 20190425, end: 20190514
  3. METHYLPREDNISOLONE [Concomitant]
     Active Substance: METHYLPREDNISOLONE
     Indication: Pulmonary haemosiderosis
     Dosage: 0.25 MILLIGRAM PER KILOGRAM, QD
  4. METHYLPREDNISOLONE [Concomitant]
     Active Substance: METHYLPREDNISOLONE
     Dosage: 1.54 MILLIGRAM PER KILOGRAM, QD
  5. METHYLPREDNISOLONE [Concomitant]
     Active Substance: METHYLPREDNISOLONE
     Dosage: 2 MILLIGRAM PER KILOGRAM, QD
  6. SULBACTAM [Concomitant]
     Active Substance: SULBACTAM
     Indication: Antibiotic therapy
     Dosage: UNK
     Route: 042
     Dates: start: 20190516, end: 20190521
  7. CEFOPERAZON [Concomitant]
     Indication: Antibiotic therapy
     Dosage: UNK
     Route: 042
     Dates: start: 20190516, end: 20190521

REACTIONS (4)
  - Pleural thickening [Recovered/Resolved]
  - Pulmonary cavitation [Recovered/Resolved]
  - Lung disorder [Recovered/Resolved]
  - Therapy non-responder [Recovered/Resolved]

NARRATIVE: CASE EVENT DATE: 20190501
